FAERS Safety Report 12346246 (Version 1)
Quarter: 2016Q2

REPORT INFORMATION
  Report Type: Spontaneous
  Country: US (occurrence: US)
  Receive Date: 20160509
  Receipt Date: 20160509
  Transmission Date: 20160815
  Serious: No
  Sender: FDA-Public Use
  Company Number: US-PFIZER INC-2016246959

PATIENT
  Age: 56 Year
  Sex: Female
  Weight: 61 kg

DRUGS (4)
  1. SEROQUEL [Concomitant]
     Active Substance: QUETIAPINE FUMARATE
  2. ATENOLOL. [Concomitant]
     Active Substance: ATENOLOL
  3. XANAX [Concomitant]
     Active Substance: ALPRAZOLAM
  4. PREMARIN [Suspect]
     Active Substance: ESTROGENS, CONJUGATED
     Indication: VULVOVAGINAL DRYNESS
     Dosage: 0.625 MG, 2X/WEEK HALF APPLICATION AT BED

REACTIONS (3)
  - Product solubility abnormal [Unknown]
  - Micturition disorder [Unknown]
  - Poor quality drug administered [Unknown]
